FAERS Safety Report 6861129-1 (Version None)
Quarter: 2010Q3

REPORT INFORMATION
  Report Type: 
  Country: None (occurrence: None)
  Receive Date: 20100720
  Receipt Date: 20100708
  Transmission Date: 20110219
  Serious: Yes (Other)
  Sender: FDA-Public Use
  Company Number: US-PFIZER INC-2010085415

PATIENT
  Sex: Female
  Weight: 104 kg

DRUGS (4)
  1. REVATIO [Suspect]
     Indication: PULMONARY HYPERTENSION
     Dosage: 20 MG, 3X/DAY
     Route: 048
     Dates: start: 20090101, end: 20100101
  2. SYNTHROID [Concomitant]
     Indication: THYROID DISORDER
     Dosage: 125 MG, 1X/DAY
     Route: 048
  3. ZIAC [Concomitant]
     Indication: HYPERTENSION
     Dosage: 25 MG, 1X/DAY
     Route: 048
  4. ACETYLSALICYLIC ACID [Concomitant]
     Dosage: UNK

REACTIONS (3)
  - COUGH [None]
  - DYSPNOEA [None]
  - VOCAL CORD THICKENING [None]
